FAERS Safety Report 13962013 (Version 1)
Quarter: 2017Q3

REPORT INFORMATION
  Report Type: Report from Study
  Country: US (occurrence: US)
  Receive Date: 20170912
  Receipt Date: 20170912
  Transmission Date: 20171128
  Serious: Yes (Other)
  Sender: FDA-Public Use
  Company Number: PHEH2017US028645

PATIENT
  Sex: Female

DRUGS (1)
  1. COSENTYX [Suspect]
     Active Substance: SECUKINUMAB
     Indication: PSORIASIS
     Dosage: 300 MG, UNK
     Route: 058
     Dates: start: 20170502, end: 20170726

REACTIONS (5)
  - Hydronephrosis [Unknown]
  - Blood urine present [Unknown]
  - Arthritis [Unknown]
  - Weight increased [Unknown]
  - Hepatic pain [Unknown]
